FAERS Safety Report 9074378 (Version 3)
Quarter: 2013Q1

REPORT INFORMATION
  Report Type: Report from Study
  Country: US (occurrence: US)
  Receive Date: 20130129
  Receipt Date: 20130224
  Transmission Date: 20140127
  Serious: Yes (Hospitalization, Other)
  Sender: FDA-Public Use
  Company Number: US-ABBOTT-12P-163-0920655-00

PATIENT
  Age: 62 None
  Sex: Female

DRUGS (4)
  1. HUMIRA 40 MG/0.8 ML PEN [Suspect]
     Indication: CROHN^S DISEASE
     Route: 058
     Dates: start: 201107, end: 20120131
  2. HUMIRA 40 MG/0.8 ML PEN [Suspect]
     Route: 058
  3. PRILOSEC [Concomitant]
     Indication: GASTROOESOPHAGEAL REFLUX DISEASE
  4. VITAMIN B12 [Concomitant]
     Indication: VITAMIN B12 ABNORMAL

REACTIONS (3)
  - Pollakiuria [Recovered/Resolved]
  - Visual impairment [Unknown]
  - Cataract subcapsular [Not Recovered/Not Resolved]
